FAERS Safety Report 4719352-8 (Version None)
Quarter: 2005Q3

REPORT INFORMATION
  Report Type: 
  Country: None (occurrence: None)
  Receive Date: 20050719
  Receipt Date: 20050708
  Transmission Date: 20060218
  Serious: Yes (Death)
  Sender: FDA-Public Use
  Company Number: 2005JP001136

PATIENT
  Age: 51 Year
  Sex: Female
  Weight: 65.0005 kg

DRUGS (14)
  1. PROGRAF [Suspect]
     Indication: BONE MARROW TRANSPLANT
     Dosage: 0.80 MG BID ORAL
     Route: 048
     Dates: start: 20040722, end: 20040907
  2. PREDNISONE [Concomitant]
  3. DENOSINE^TANABE^(GANCICLOVIR) [Concomitant]
  4. DIFLUCAN [Concomitant]
  5. BAKTAR (FULFAMETHOXAZOLE, TRIMETHOPRIM) [Concomitant]
  6. GRAN (FILGRASTIM) [Concomitant]
  7. FUNGUARD (MICAFUNGIN) [Concomitant]
  8. ZOVIRAX [Concomitant]
  9. ITRACONAZOLE [Concomitant]
  10. MAXIPIME [Concomitant]
  11. OMEGACIN [Concomitant]
  12. LEPETAN (BUPRENORPHINE HYDROCHLORIDE) [Concomitant]
  13. LANSOPRAZOLE [Concomitant]
  14. MUCOSTA (REBAMIPIDE) [Concomitant]

REACTIONS (16)
  - ABDOMINAL PAIN [None]
  - ADENOVIRUS INFECTION [None]
  - COAGULOPATHY [None]
  - DEPRESSED LEVEL OF CONSCIOUSNESS [None]
  - EPSTEIN-BARR VIRUS INFECTION [None]
  - HAEMODIALYSIS [None]
  - HEPATIC FAILURE [None]
  - HEPATIC NECROSIS [None]
  - HEPATITIS FULMINANT [None]
  - HYPOXIA [None]
  - LIVER DISORDER [None]
  - LUNG INFILTRATION [None]
  - MALAISE [None]
  - PROTHROMBIN TIME PROLONGED [None]
  - PYREXIA [None]
  - VOMITING [None]
